FAERS Safety Report 23049445 (Version 1)
Quarter: 2023Q4

REPORT INFORMATION
  Report Type: Spontaneous
  Country: US (occurrence: None)
  Receive Date: 20231006
  Receipt Date: 20231006
  Transmission Date: 20240109
  Serious: Yes (Hospitalization)
  Sender: FDA-Public Use
  Company Number: None

PATIENT
  Sex: Female

DRUGS (2)
  1. TEMOZOLOMIDE [Suspect]
     Active Substance: TEMOZOLOMIDE
     Indication: Malignant connective tissue neoplasm
     Dosage: OTHER FREQUENCY : D 1-5 21D CYCLE;?
     Route: 048
     Dates: start: 202309
  2. TEMOZOLOMIDE [Suspect]
     Active Substance: TEMOZOLOMIDE
     Indication: Malignant connective tissue neoplasm
     Dosage: OTHER FREQUENCY : D 1-5 21D CYCLE;?
     Route: 048
     Dates: start: 202309

REACTIONS (1)
  - Diarrhoea [None]
